FAERS Safety Report 15490423 (Version 2)
Quarter: 2018Q4

REPORT INFORMATION
  Report Type: Spontaneous
  Country: TH (occurrence: TH)
  Receive Date: 20181011
  Receipt Date: 20181017
  Transmission Date: 20190205
  Serious: Yes (Other)
  Sender: FDA-Public Use
  Company Number: PHHY2018TH101601

PATIENT
  Age: 60 Year
  Sex: Female

DRUGS (17)
  1. ENTRESTO [Suspect]
     Active Substance: SACUBITRIL\VALSARTAN
     Dosage: 50 MG, BID
     Route: 065
     Dates: start: 201709
  2. SPIRONOLACTONE. [Concomitant]
     Active Substance: SPIRONOLACTONE
     Indication: PRODUCT USED FOR UNKNOWN INDICATION
     Dosage: 0.5 DF, QD
     Route: 065
     Dates: start: 201501
  3. SPIRONOLACTONE. [Concomitant]
     Active Substance: SPIRONOLACTONE
     Dosage: 0.5 DF, QD
     Route: 065
     Dates: start: 201709
  4. ENTRESTO [Suspect]
     Active Substance: SACUBITRIL\VALSARTAN
     Dosage: 50 MG, BID
     Route: 065
     Dates: start: 201706
  5. IVABRADINE [Concomitant]
     Active Substance: IVABRADINE
     Indication: PRODUCT USED FOR UNKNOWN INDICATION
     Dosage: 1 DF, BID
     Route: 065
     Dates: start: 201501
  6. CARVEDILOL. [Concomitant]
     Active Substance: CARVEDILOL
     Indication: PRODUCT USED FOR UNKNOWN INDICATION
     Dosage: 0.5 DF (6.25 OT), BID
     Route: 065
     Dates: start: 201501
  7. IVABRADINE [Concomitant]
     Active Substance: IVABRADINE
     Dosage: 1 DF, BID
     Route: 065
     Dates: start: 201503
  8. NEBIVOLOL. [Concomitant]
     Active Substance: NEBIVOLOL
     Dosage: 1 DF, QD
     Route: 065
     Dates: start: 201706
  9. CARVEDILOL. [Concomitant]
     Active Substance: CARVEDILOL
     Dosage: 0.5 DF (12.5 OT), BID
     Route: 065
     Dates: start: 201503
  10. SPIRONOLACTONE. [Concomitant]
     Active Substance: SPIRONOLACTONE
     Dosage: 0.5 DF, QD
     Route: 065
     Dates: start: 201704
  11. NEBIVOLOL. [Concomitant]
     Active Substance: NEBIVOLOL
     Dosage: 1 DF, QD
     Route: 065
     Dates: start: 201704
  12. NEBIVOLOL. [Concomitant]
     Active Substance: NEBIVOLOL
     Dosage: 1 DF, QD
     Route: 065
     Dates: start: 201709
  13. CARVEDILOL. [Concomitant]
     Active Substance: CARVEDILOL
     Dosage: 0.5 DF (25 OT), BID
     Route: 065
     Dates: start: 201701
  14. SPIRONOLACTONE. [Concomitant]
     Active Substance: SPIRONOLACTONE
     Dosage: 0.5 DF, QD
     Route: 065
     Dates: start: 201706
  15. SPIRONOLACTONE. [Concomitant]
     Active Substance: SPIRONOLACTONE
     Dosage: 0.5 DF, QD
     Route: 065
     Dates: start: 201503
  16. NEBIVOLOL. [Concomitant]
     Active Substance: NEBIVOLOL
     Indication: PRODUCT USED FOR UNKNOWN INDICATION
     Dosage: 1 DF, QD
     Route: 065
     Dates: start: 201701
  17. ENTRESTO [Suspect]
     Active Substance: SACUBITRIL\VALSARTAN
     Indication: CARDIAC FAILURE CHRONIC
     Dosage: 50 MG, BID
     Route: 065
     Dates: start: 201704

REACTIONS (4)
  - Blood pressure diastolic decreased [Unknown]
  - Heart rate decreased [Recovering/Resolving]
  - Hypotension [Unknown]
  - Orthostatic hypotension [Recovering/Resolving]

NARRATIVE: CASE EVENT DATE: 201704
